FAERS Safety Report 4496150-4 (Version None)
Quarter: 2004Q4

REPORT INFORMATION
  Report Type: 
  Country: None (occurrence: None)
  Receive Date: 20041108
  Receipt Date: 20041108
  Transmission Date: 20050328
  Serious: Yes (Death)
  Sender: FDA-Public Use
  Company Number: None

PATIENT
  Sex: Male
  Weight: 59.5 kg

DRUGS (11)
  1. BEVACIZUMAB [Suspect]
     Indication: OESOPHAGEAL CARCINOMA
     Dosage: 5 MG/KG DAYS 1 AND 15 IV
     Route: 042
     Dates: start: 20040825, end: 20041006
  2. DOCETAXEL [Suspect]
     Indication: OESOPHAGEAL CARCINOMA
     Dosage: 35 MG/M2 DAYS 1, 8,+15 IV
     Route: 042
     Dates: start: 20040825, end: 20041006
  3. AMBIEN [Concomitant]
  4. DECADRON [Concomitant]
  5. MEGACE [Concomitant]
  6. OXYCODONE HCL [Concomitant]
  7. PAXIL [Concomitant]
  8. PROTONIX [Concomitant]
  9. REGLAN [Concomitant]
  10. RITALIN [Concomitant]
  11. EPOGEN [Concomitant]

REACTIONS (1)
  - MALIGNANT NEOPLASM PROGRESSION [None]
